FAERS Safety Report 21327246 (Version 1)
Quarter: 2022Q3

REPORT INFORMATION
  Report Type: Spontaneous
  Country: FR (occurrence: FR)
  Receive Date: 20220913
  Receipt Date: 20220913
  Transmission Date: 20221026
  Serious: Yes (Congenital Anomaly, Other)
  Sender: FDA-Public Use
  Company Number: FR-AFSSAPS-PO20221602

PATIENT
  Sex: Female

DRUGS (7)
  1. ESOMEPRAZOLE [Suspect]
     Active Substance: ESOMEPRAZOLE
     Dosage: UNK
     Route: 064
  2. PROPRANOLOL [Suspect]
     Active Substance: PROPRANOLOL HYDROCHLORIDE
     Dosage: UNK
     Route: 064
  3. LEVOTHYROXINE [Suspect]
     Active Substance: LEVOTHYROXINE
     Dosage: UNK
     Route: 064
  4. PENICILLIN V [Suspect]
     Active Substance: PENICILLIN V
     Dosage: UNK
     Route: 064
  5. HYDROCORTISONE [Suspect]
     Active Substance: HYDROCORTISONE
     Dosage: UNK
     Route: 064
  6. RUXOLITINIB [Suspect]
     Active Substance: RUXOLITINIB
     Dosage: UNK
     Route: 064
  7. VALACYCLOVIR HYDROCHLORIDE [Suspect]
     Active Substance: VALACYCLOVIR HYDROCHLORIDE
     Dosage: UNK
     Route: 064

REACTIONS (2)
  - Oligohydramnios [Recovered/Resolved]
  - Foetal growth restriction [Recovering/Resolving]

NARRATIVE: CASE EVENT DATE: 20220415
